FAERS Safety Report 5235771-8 (Version None)
Quarter: 2007Q1

REPORT INFORMATION
  Report Type: 
  Country: None (occurrence: None)
  Receive Date: 20070212
  Receipt Date: 20070201
  Transmission Date: 20070707
  Serious: Yes (Hospitalization)
  Sender: FDA-Public Use
  Company Number: FR-AVENTIS-200710411FR

PATIENT
  Age: 62 Year
  Sex: Male

DRUGS (4)
  1. LASILIX                            /00032601/ [Suspect]
     Indication: DRUG USE FOR UNKNOWN INDICATION
     Route: 048
  2. CORDARONE [Suspect]
     Indication: DRUG USE FOR UNKNOWN INDICATION
     Route: 048
  3. NEORECORMON [Suspect]
     Indication: DRUG USE FOR UNKNOWN INDICATION
     Route: 058
  4. ALDACTONE [Suspect]
     Indication: DRUG USE FOR UNKNOWN INDICATION
     Route: 048

REACTIONS (4)
  - BLOOD IRON INCREASED [None]
  - COMA [None]
  - HEPATIC ENCEPHALOPATHY [None]
  - RESPIRATORY DISTRESS [None]
